FAERS Safety Report 21963106 (Version 1)
Quarter: 2023Q1

REPORT INFORMATION
  Report Type: Spontaneous
  Country: US (occurrence: None)
  Receive Date: 20230205
  Receipt Date: 20230205
  Transmission Date: 20230418
  Serious: No
  Sender: FDA-Public Use
  Company Number: None

PATIENT
  Sex: Female

DRUGS (1)
  1. PRALUENT [Suspect]
     Active Substance: ALIROCUMAB
     Indication: Hyperlipidaemia
     Dosage: OTHER QUANTITY : 2 INJECTION(S);?OTHER FREQUENCY : EVERY 2 WEEKS;?
     Route: 058
     Dates: start: 20220917, end: 20221029

REACTIONS (2)
  - Injection site discolouration [None]
  - Therapy cessation [None]

NARRATIVE: CASE EVENT DATE: 20220917
